FAERS Safety Report 6107806-1 (Version None)
Quarter: 2009Q1

REPORT INFORMATION
  Report Type: 
  Country: None (occurrence: None)
  Receive Date: 20090309
  Receipt Date: 20090304
  Transmission Date: 20090719
  Serious: Yes (Hospitalization)
  Sender: FDA-Public Use
  Company Number: B0563117A

PATIENT
  Age: 84 Year
  Sex: Female

DRUGS (3)
  1. AUGMENTIN '125' [Suspect]
     Indication: BRONCHITIS
     Dosage: 1UNIT THREE TIMES PER DAY
     Route: 048
     Dates: start: 20090124, end: 20090126
  2. CIPROFLOXACIN HCL [Suspect]
     Indication: BRONCHITIS
     Route: 048
     Dates: start: 20090124, end: 20090126
  3. OMEPRAZOLE [Suspect]
     Indication: DRUG USE FOR UNKNOWN INDICATION
     Dosage: 1UNIT PER DAY
     Route: 048
     Dates: start: 20090124, end: 20090126

REACTIONS (10)
  - ALANINE AMINOTRANSFERASE INCREASED [None]
  - DERMATITIS EXFOLIATIVE [None]
  - GAMMA-GLUTAMYLTRANSFERASE INCREASED [None]
  - HEPATOCELLULAR INJURY [None]
  - HYPERSENSITIVITY [None]
  - LEUKOCYTOSIS [None]
  - ORAL DISORDER [None]
  - PYREXIA [None]
  - SKIN DISORDER [None]
  - TOXIC SKIN ERUPTION [None]
